FAERS Safety Report 4674328-4 (Version None)
Quarter: 2005Q2

REPORT INFORMATION
  Report Type: 
  Country: None (occurrence: None)
  Receive Date: 20050524
  Receipt Date: 20050511
  Transmission Date: 20051028
  Serious: Yes (Other)
  Sender: FDA-Public Use
  Company Number: US_0505117376

PATIENT
  Age: 71 Year
  Sex: Female

DRUGS (8)
  1. ZYPREXA [Suspect]
     Indication: NAUSEA
     Dosage: 5 MG OTHER
     Route: 050
  2. OCTREOTIDE ACETATE [Concomitant]
  3. LOPERAMIDE [Concomitant]
  4. LANSOPRAZOLE [Concomitant]
  5. HALOPERIDOL [Concomitant]
  6. GLYCOPYRROLATE [Concomitant]
  7. NORMAL SALINE [Concomitant]
  8. CODEINE [Concomitant]

REACTIONS (8)
  - DEHYDRATION [None]
  - DELIRIUM [None]
  - DIARRHOEA [None]
  - DRUG EFFECT DECREASED [None]
  - EXTRAPYRAMIDAL DISORDER [None]
  - HALLUCINATION, VISUAL [None]
  - MYOCLONUS [None]
  - THERAPEUTIC AGENT TOXICITY [None]
